FAERS Safety Report 12761256 (Version 1)
Quarter: 2016Q3

REPORT INFORMATION
  Report Type: Spontaneous
  Country: US (occurrence: US)
  Receive Date: 20160920
  Receipt Date: 20160920
  Transmission Date: 20161109
  Serious: No
  Sender: FDA-Public Use
  Company Number: US-TEVA-661571USA

PATIENT
  Sex: Male
  Weight: 56.75 kg

DRUGS (1)
  1. CARVEDILOL. [Suspect]
     Active Substance: CARVEDILOL
     Indication: CARDIAC DISORDER
     Dosage: 12.5 MILLIGRAM DAILY;
     Route: 048
     Dates: start: 20150601

REACTIONS (2)
  - Incorrect dose administered [Unknown]
  - Feeling abnormal [Unknown]
